FAERS Safety Report 11472091 (Version 1)
Quarter: 2015Q3

REPORT INFORMATION
  Report Type: Spontaneous
  Country: NO (occurrence: NO)
  Receive Date: 20150908
  Receipt Date: 20150908
  Transmission Date: 20151125
  Serious: Yes (Life-Threatening, Other)
  Sender: FDA-Public Use
  Company Number: NO-PFIZER INC-2015291246

PATIENT
  Age: 23 Year
  Sex: Male
  Weight: 102 kg

DRUGS (6)
  1. LYRICA [Suspect]
     Active Substance: PREGABALIN
     Indication: PAIN
     Dosage: 150 MG MORNING AND EVENING
     Dates: start: 20140901, end: 20150813
  2. PARACET [Concomitant]
     Active Substance: ACETAMINOPHEN
     Dosage: UNK
  3. TRAMADOL ACTAVIS [Concomitant]
     Active Substance: TRAMADOL
     Indication: POST PROCEDURAL COMPLICATION
     Dosage: UNK
  4. LYRICA [Suspect]
     Active Substance: PREGABALIN
     Indication: POST PROCEDURAL COMPLICATION
     Dosage: UNK
  5. TRAMADOL ACTAVIS [Concomitant]
     Active Substance: TRAMADOL
     Indication: PAIN
     Dosage: UNK
     Dates: start: 20140901, end: 20150813
  6. PARACET [Concomitant]
     Active Substance: ACETAMINOPHEN
     Indication: PAIN
     Dosage: UNK
     Dates: start: 20130211, end: 20150813

REACTIONS (11)
  - Nausea [Unknown]
  - Irritability [Unknown]
  - Vision blurred [Unknown]
  - Depression [Unknown]
  - Suicide attempt [Unknown]
  - Hot flush [Unknown]
  - Heart rate increased [Unknown]
  - Sleep disorder [Unknown]
  - Dizziness [Unknown]
  - Cold sweat [Unknown]
  - Paraesthesia [Unknown]

NARRATIVE: CASE EVENT DATE: 20150101
